FAERS Safety Report 9100603 (Version 2)
Quarter: 2013Q1

REPORT INFORMATION
  Report Type: Spontaneous
  Country: US (occurrence: US)
  Receive Date: 20130214
  Receipt Date: 20130314
  Transmission Date: 20140127
  Serious: Yes (Other)
  Sender: FDA-Public Use
  Company Number: PHEH2012US025019

PATIENT
  Age: 49 Year
  Sex: Female
  Weight: 72.56 kg

DRUGS (5)
  1. GILENYA [Suspect]
     Indication: MULTIPLE SCLEROSIS
     Dosage: 0.5 MG, QD
     Route: 048
     Dates: start: 20121108
  2. ATORVASTATIN [Concomitant]
  3. ASPIRIN [Concomitant]
  4. TYLENOL [Concomitant]
  5. EYE DROPS [Concomitant]
     Indication: EYE DISORDER
     Dosage: 2 DF, QD

REACTIONS (5)
  - Weight decreased [Not Recovered/Not Resolved]
  - Ear disorder [Not Recovered/Not Resolved]
  - Influenza like illness [Not Recovered/Not Resolved]
  - Headache [Not Recovered/Not Resolved]
  - Dizziness [Not Recovered/Not Resolved]
